FAERS Safety Report 7432337-6 (Version None)
Quarter: 2011Q2

REPORT INFORMATION
  Report Type: 
  Country: None (occurrence: None)
  Receive Date: 20110422
  Receipt Date: 20110418
  Transmission Date: 20111010
  Serious: Yes (Other)
  Sender: FDA-Public Use
  Company Number: DK-PFIZER INC-2011084957

PATIENT
  Age: 40 Year
  Sex: Female
  Weight: 63 kg

DRUGS (2)
  1. AZITHROMYCIN [Suspect]
     Indication: PROPHYLAXIS
     Dosage: 2 TABLETS AS SINGLE DOSE, STRENGHT 500 MG.
     Route: 048
     Dates: start: 20100923, end: 20100923
  2. CYTOTEC [Concomitant]
     Indication: ABORTION INDUCED
     Dosage: 2 TABLETS AS SINGLE DOSE, STRENGTH: 0,2 MG.
     Route: 048
     Dates: start: 20100924, end: 20100924

REACTIONS (3)
  - PHARYNGEAL OEDEMA [None]
  - PYREXIA [None]
  - FLUSHING [None]
